FAERS Safety Report 11371858 (Version 1)
Quarter: 2015Q3

REPORT INFORMATION
  Report Type: Spontaneous
  Country: US (occurrence: US)
  Receive Date: 20150812
  Receipt Date: 20150812
  Transmission Date: 20151125
  Serious: No
  Sender: FDA-Public Use
  Company Number: US-GLAXOSMITHKLINE-US2015GSK089098

PATIENT
  Sex: Female

DRUGS (3)
  1. ADVAIR DISKUS [Suspect]
     Active Substance: FLUTICASONE PROPIONATE\SALMETEROL XINAFOATE
     Indication: ASTHMA
  2. ADVAIR DISKUS [Suspect]
     Active Substance: FLUTICASONE PROPIONATE\SALMETEROL XINAFOATE
     Indication: OFF LABEL USE
  3. ALBUTEROL INHALATIONAL POWDER [Suspect]
     Active Substance: ALBUTEROL
     Indication: ASTHMA

REACTIONS (6)
  - Off label use [Unknown]
  - Malaise [Unknown]
  - Blood thyroid stimulating hormone abnormal [Unknown]
  - Glucocorticoids increased [Unknown]
  - Device use error [Unknown]
  - Intentional product use issue [Unknown]
